FAERS Safety Report 8840144 (Version 1)
Quarter: 2012Q4

REPORT INFORMATION
  Report Type: 
  Country: US (occurrence: US)
  Receive Date: 20121015
  Receipt Date: 20121015
  Transmission Date: 20130627
  Serious: Yes (Other)
  Sender: FDA-Public Use
  Company Number: US-ROCHE-735493

PATIENT
  Sex: Female
  Weight: 47.6 kg

DRUGS (4)
  1. ACCUTANE [Suspect]
     Indication: ACNE
     Route: 065
     Dates: start: 1996, end: 1996
  2. ACCUTANE [Suspect]
     Route: 065
     Dates: start: 1998, end: 1998
  3. ACCUTANE [Suspect]
     Route: 065
  4. ACCUTANE [Suspect]
     Route: 065

REACTIONS (5)
  - Crohn^s disease [Unknown]
  - Colitis ulcerative [Unknown]
  - Gastrointestinal injury [Unknown]
  - Inflammatory bowel disease [Unknown]
  - Anal fissure [Unknown]
